FAERS Safety Report 4793632-2 (Version None)
Quarter: 2005Q4

REPORT INFORMATION
  Report Type: 
  Country: None (occurrence: None)
  Receive Date: 20051011
  Receipt Date: 20050822
  Transmission Date: 20060501
  Serious: Yes (Other)
  Sender: FDA-Public Use
  Company Number: US-BOEHRINGER INGELHEIM PHARMACEUTICALS, INC.-2005-BP-14814BP

PATIENT
  Sex: Male
  Weight: 82.63 kg

DRUGS (2)
  1. COMBIVENT [Suspect]
     Indication: ASTHMA
     Route: 055
     Dates: start: 19930101
  2. AZMACORT [Concomitant]
     Route: 048

REACTIONS (2)
  - COLON CANCER [None]
  - PHARMACEUTICAL PRODUCT COMPLAINT [None]
